FAERS Safety Report 9704541 (Version 3)
Quarter: 2014Q1

REPORT INFORMATION
  Report Type: Spontaneous
  Country: US (occurrence: US)
  Receive Date: 20131122
  Receipt Date: 20140108
  Transmission Date: 20141002
  Serious: Yes (Hospitalization)
  Sender: FDA-Public Use
  Company Number: US-ROCHE-1307599

PATIENT
  Age: 47 Year
  Sex: Female

DRUGS (3)
  1. AVASTIN [Suspect]
     Indication: CHOROIDAL NEOVASCULARISATION
     Dosage: 5 INJECTIONS
     Route: 042
     Dates: start: 20130501, end: 20130821
  2. AVASTIN [Suspect]
     Route: 065
     Dates: start: 20131119
  3. LUCENTIS [Concomitant]
     Route: 065
     Dates: start: 20131001

REACTIONS (1)
  - Headache [Unknown]
